FAERS Safety Report 7681010-8 (Version None)
Quarter: 2011Q3

REPORT INFORMATION
  Report Type: 
  Country: None (occurrence: None)
  Receive Date: 20110812
  Receipt Date: 20110808
  Transmission Date: 20111222
  Serious: Yes (Other)
  Sender: FDA-Public Use
  Company Number: US-CEPHALON-2010005352

PATIENT
  Sex: Female
  Weight: 42 kg

DRUGS (4)
  1. METROGEL [Suspect]
     Indication: RASH
  2. RISPERIDONE [Concomitant]
     Dates: start: 20100201
  3. PROTOPIC GEL [Suspect]
     Indication: RASH
  4. PROVIGIL [Suspect]
     Indication: ATTENTION DEFICIT/HYPERACTIVITY DISORDER
     Route: 048
     Dates: start: 20100501

REACTIONS (8)
  - DRUG INEFFECTIVE FOR UNAPPROVED INDICATION [None]
  - WEIGHT DECREASED [None]
  - OEDEMA PERIPHERAL [None]
  - SKIN BURNING SENSATION [None]
  - RASH ERYTHEMATOUS [None]
  - INTENTIONAL DRUG MISUSE [None]
  - ALOPECIA [None]
  - ABDOMINAL DISCOMFORT [None]
